FAERS Safety Report 7219192-4 (Version None)
Quarter: 2011Q1

REPORT INFORMATION
  Report Type: 
  Country: None (occurrence: None)
  Receive Date: 20110111
  Receipt Date: 20110107
  Transmission Date: 20110831
  Serious: Yes (Death)
  Sender: FDA-Public Use
  Company Number: US-AMGEN-USASP2010012400

PATIENT

DRUGS (5)
  1. NPLATE [Suspect]
     Dosage: 2 A?G/KG, UNK
     Dates: start: 20100929
  2. CORTICOSTEROIDS [Concomitant]
     Indication: PRODUCT USED FOR UNKNOWN INDICATION
  3. NPLATE [Suspect]
     Dosage: 2 A?G/KG, UNK
     Dates: start: 20100922
  4. NPLATE [Suspect]
     Dosage: 1 A?G/KG, UNK
     Dates: start: 20100915
  5. NPLATE [Suspect]
     Indication: IDIOPATHIC THROMBOCYTOPENIC PURPURA
     Dosage: 2 A?G/KG, UNK
     Dates: start: 20100914

REACTIONS (1)
  - DEATH [None]
